FAERS Safety Report 8070724-6 (Version None)
Quarter: 2011Q4

REPORT INFORMATION
  Report Type: 
  Country: None (occurrence: None)
  Receive Date: 20111221
  Receipt Date: 20110715
  Transmission Date: 20120403
  Serious: Yes (Hospitalization, Other)
  Sender: FDA-Public Use
  Company Number: PHHY2010US81887

PATIENT
  Age: 72 Year
  Sex: Male

DRUGS (2)
  1. EXJADE [Suspect]
     Indication: IRON OVERLOAD
     Dosage: 500 MG, QD, ORAL
     Route: 048
     Dates: start: 20071113
  2. EXJADE [Suspect]
     Indication: DIFFUSE LARGE B-CELL LYMPHOMA
     Dosage: 500 MG, QD, ORAL
     Route: 048
     Dates: start: 20071113

REACTIONS (2)
  - RENAL IMPAIRMENT [None]
  - PYREXIA [None]
